FAERS Safety Report 9859991 (Version 2)
Quarter: 2014Q1

REPORT INFORMATION
  Report Type: Spontaneous
  Country: US (occurrence: US)
  Receive Date: 20140131
  Receipt Date: 20140131
  Transmission Date: 20141002
  Serious: Yes (Death)
  Sender: FDA-Public Use
  Company Number: US-RB-062974-14

PATIENT
  Age: 55 Year
  Sex: Male

DRUGS (3)
  1. SUBOXONE FILM [Suspect]
     Indication: DRUG DEPENDENCE
     Dosage: SUBOXONE FILM
     Route: 060
     Dates: start: 2013
  2. BENZODIAZEPINES [Concomitant]
     Indication: ANXIETY
     Dosage: DOSING DETAILS UNKNOWN
     Route: 065
  3. OXYGEN [Concomitant]
     Indication: HYPOXIA
     Dosage: DOSING DETAILS UNKNOWN; USES ONLY AT NIGHT
     Route: 065

REACTIONS (1)
  - Death [Fatal]
